FAERS Safety Report 5602900-3 (Version None)
Quarter: 2008Q1

REPORT INFORMATION
  Report Type: 
  Country: None (occurrence: None)
  Receive Date: 20080125
  Receipt Date: 20080121
  Transmission Date: 20080703
  Serious: Yes (Other)
  Sender: FDA-Public Use
  Company Number: DE-BOEHRINGER INGELHEIM PHARMACEUTICALS, INC.-2007-DE-07411DE

PATIENT
  Sex: Male
  Weight: 98 kg

DRUGS (5)
  1. PRAMIPEXOLE DIHYDROCHLORIDE [Suspect]
     Indication: RESTLESS LEGS SYNDROME
     Route: 048
     Dates: start: 20031201, end: 20071122
  2. PRAMIPEXOLE DIHYDROCHLORIDE [Suspect]
     Route: 048
     Dates: start: 20010713, end: 20030429
  3. RESTEX [Suspect]
     Indication: RESTLESS LEGS SYNDROME
     Route: 048
     Dates: start: 20060802
  4. TRAMADOL HCL [Concomitant]
     Indication: RESTLESS LEGS SYNDROME
     Route: 048
     Dates: start: 20060628
  5. FERROUS SULFATE TAB [Concomitant]
     Indication: SERUM FERRITIN DECREASED
     Route: 048
     Dates: start: 20070822

REACTIONS (2)
  - DYSPNOEA [None]
  - DYSPNOEA EXERTIONAL [None]
